FAERS Safety Report 7199668-9 (Version None)
Quarter: 2010Q4

REPORT INFORMATION
  Report Type: 
  Country: None (occurrence: None)
  Receive Date: 20101228
  Receipt Date: 20101217
  Transmission Date: 20110411
  Serious: Yes (Other)
  Sender: FDA-Public Use
  Company Number: FR-ELI_LILLY_AND_COMPANY-FR201011004708

PATIENT
  Age: 86 Year
  Sex: Female
  Weight: 145 kg

DRUGS (3)
  1. FORTEO [Suspect]
     Indication: OSTEOPOROSIS
     Dosage: 20 UG, DAILY (1/D)
     Route: 058
     Dates: start: 20100506
  2. OROCAL [Concomitant]
     Indication: OSTEOPOROSIS
     Dosage: 2 TABS, DAILY (1/D)
     Route: 048
     Dates: start: 20100420
  3. UVEDOSE [Concomitant]
     Indication: OSTEOPOROSIS
     Dosage: 1 AMP EVERY 3 MONTHS
     Route: 048
     Dates: start: 20100420

REACTIONS (2)
  - FALL [None]
  - PELVIC FRACTURE [None]
